FAERS Safety Report 9552638 (Version 2)
Quarter: 2013Q3

REPORT INFORMATION
  Report Type: Spontaneous
  Country: US (occurrence: US)
  Receive Date: 20130925
  Receipt Date: 20130925
  Transmission Date: 20140515
  Serious: No
  Sender: FDA-Public Use
  Company Number: US-PURDUE-USA-2012-0088689

PATIENT
  Sex: Female

DRUGS (3)
  1. MS CONTIN TABLETS [Suspect]
     Indication: BACK DISORDER
     Dosage: 30 MG, 2-3 TIMES DAILY
     Route: 048
     Dates: start: 201205
  2. MS CONTIN TABLETS [Suspect]
     Dosage: 15 MG, QID
     Route: 048
     Dates: end: 201205
  3. MS CONTIN TABLETS [Suspect]
     Dosage: 60 MG, TID
     Route: 048

REACTIONS (8)
  - Eye pain [Not Recovered/Not Resolved]
  - Eye irritation [Not Recovered/Not Resolved]
  - Pain of skin [Not Recovered/Not Resolved]
  - Eye disorder [Not Recovered/Not Resolved]
  - Drug intolerance [Not Recovered/Not Resolved]
  - Unevaluable event [Unknown]
  - Dyspepsia [Not Recovered/Not Resolved]
  - Pruritus [Not Recovered/Not Resolved]
